FAERS Safety Report 9818202 (Version 1)
Quarter: 2014Q1

REPORT INFORMATION
  Report Type: Report from Study
  Country: TN (occurrence: TN)
  Receive Date: 20140115
  Receipt Date: 20140115
  Transmission Date: 20141002
  Serious: Yes (Death, Other)
  Sender: FDA-Public Use
  Company Number: TN-ASTELLAS-2014EU000186

PATIENT
  Age: 20 Year
  Sex: Male

DRUGS (3)
  1. TACROLIMUS SYSTEMIC [Suspect]
     Indication: IMMUNOSUPPRESSION
     Dosage: 2 MG, UNKNOWN/D
     Route: 065
  2. PREDNISONE [Suspect]
     Indication: IMMUNOSUPPRESSION
     Dosage: 2 DF, UNKNOWN/D
     Route: 065
  3. MYCOPHENOLATE MOFETIL [Suspect]
     Indication: IMMUNOSUPPRESSION
     Dosage: 1 DF, BID
     Route: 065

REACTIONS (6)
  - Systemic candida [Fatal]
  - Gastric haemorrhage [Fatal]
  - Disseminated intravascular coagulation [Fatal]
  - Pancytopenia [Unknown]
  - Neutropenia [Unknown]
  - Renal failure [Unknown]
